FAERS Safety Report 14491358 (Version 1)
Quarter: 2018Q1

REPORT INFORMATION
  Report Type: Spontaneous
  Country: US (occurrence: US)
  Receive Date: 20180205
  Receipt Date: 20180205
  Transmission Date: 20180509
  Serious: Yes (Other)
  Sender: FDA-Public Use
  Company Number: None

PATIENT
  Age: 15 Year
  Sex: Male
  Weight: 72.58 kg

DRUGS (1)
  1. THERAFLU NIGHTTIME SEVERE COLD AND COUGH [Suspect]
     Active Substance: ACETAMINOPHEN\DIPHENHYDRAMINE HYDROCHLORIDE\PHENYLEPHRINE HYDROCHLORIDE
     Indication: INFLUENZA LIKE ILLNESS
     Route: 048
     Dates: start: 20180204, end: 20180204

REACTIONS (1)
  - Urticaria [None]

NARRATIVE: CASE EVENT DATE: 20180204
